FAERS Safety Report 10395117 (Version 1)
Quarter: 2014Q3

REPORT INFORMATION
  Report Type: Spontaneous
  Country: FR (occurrence: FR)
  Receive Date: 20140820
  Receipt Date: 20140820
  Transmission Date: 20150326
  Serious: Yes (Hospitalization)
  Sender: FDA-Public Use
  Company Number: FR-ELI_LILLY_AND_COMPANY-FR201408002248

PATIENT
  Age: 81 Year
  Sex: Male

DRUGS (10)
  1. SEROPLEX [Concomitant]
     Active Substance: ESCITALOPRAM OXALATE
     Indication: DEPRESSION
     Dosage: 10 MG, QD
     Route: 048
     Dates: end: 20140112
  2. AZOPT [Concomitant]
     Active Substance: BRINZOLAMIDE
     Dosage: 10 MG, BID
     Route: 048
  3. SULFARLEM [Concomitant]
     Active Substance: ANETHOLTRITHION
     Dosage: 75 MG, QD
     Route: 048
  4. COKENZEN [Concomitant]
     Active Substance: CANDESARTAN CILEXETIL\HYDROCHLOROTHIAZIDE
     Dosage: 1 DF, QD
     Route: 048
  5. TIAPRIDAL /00435702/ [Suspect]
     Active Substance: TIAPRIDE HYDROCHLORIDE
     Indication: PRODUCT USED FOR UNKNOWN INDICATION
     Dosage: UNK
     Route: 048
     Dates: start: 201312, end: 20140112
  6. OGAST [Concomitant]
     Active Substance: LANSOPRAZOLE
     Indication: GASTRODUODENAL ULCER
     Dosage: 15 MG, QD
     Route: 048
  7. ZYPREXA [Suspect]
     Active Substance: OLANZAPINE
     Indication: DEPRESSION
     Dosage: UNK
     Route: 048
     Dates: start: 201312, end: 20140112
  8. DOLIPRANE [Concomitant]
     Active Substance: ACETAMINOPHEN
     Dosage: 500 MG, QD
     Route: 048
  9. CREON [Concomitant]
     Active Substance: PANCRELIPASE AMYLASE\PANCRELIPASE LIPASE\PANCRELIPASE PROTEASE
     Dosage: 50000 IU, QD
     Route: 048
  10. CRESTOR [Concomitant]
     Active Substance: ROSUVASTATIN CALCIUM
     Dosage: 5 MG, QD

REACTIONS (5)
  - Confusional state [Recovered/Resolved]
  - Somnolence [Recovered/Resolved]
  - Fall [Unknown]
  - Muscle rigidity [Recovered/Resolved]
  - Gait disturbance [Unknown]

NARRATIVE: CASE EVENT DATE: 201312
